FAERS Safety Report 7411439-4 (Version None)
Quarter: 2011Q2

REPORT INFORMATION
  Report Type: 
  Country: None (occurrence: None)
  Receive Date: 20110413
  Receipt Date: 20100810
  Transmission Date: 20111010
  Serious: No
  Sender: FDA-Public Use
  Company Number: US-BRISTOL-MYERS SQUIBB COMPANY-15233026

PATIENT
  Age: 65 Year
  Sex: Female
  Weight: 43 kg

DRUGS (4)
  1. SYNTHROID [Concomitant]
  2. ERBITUX [Suspect]
     Indication: COLON CANCER METASTATIC
  3. VITAMIN E [Concomitant]
  4. VITAMIN B6 [Concomitant]

REACTIONS (1)
  - DYSPHONIA [None]
